FAERS Safety Report 18761248 (Version 1)
Quarter: 2021Q1

REPORT INFORMATION
  Report Type: Spontaneous
  Country: US (occurrence: US)
  Receive Date: 20210119
  Receipt Date: 20210119
  Transmission Date: 20210419
  Serious: Yes (Hospitalization)
  Sender: FDA-Public Use
  Company Number: None

PATIENT
  Age: 43 Year
  Sex: Female
  Weight: 95.3 kg

DRUGS (13)
  1. CYANOCOBALAMIN 500 MCG. QD [Concomitant]
  2. CHOLECALCIFEROL 50 MCG (2,000 UNITS), QD [Concomitant]
  3. AZATHIOPRINE. [Concomitant]
     Active Substance: AZATHIOPRINE
  4. AZATHIOPRINE 150 MG, QD [Concomitant]
  5. LOSARTAN 100 MG, QD [Concomitant]
  6. METFORMIN 500 MG, BID [Concomitant]
  7. OMEPRAZOLE 40 MG, QD [Concomitant]
  8. UNSPECIFIED DRUG [Suspect]
     Active Substance: UNSPECIFIED INGREDIENT
  9. HUMIRA [Concomitant]
     Active Substance: ADALIMUMAB
  10. HUMIRA 40 MG, INJECTION Q WEEK (LAST DOSE UNKNOWN, NEXT DOSE UNKNOWN [Concomitant]
  11. AMLODIPINE 5 MG, QD [Concomitant]
  12. FERROUS FUMARATE 324 MG, QD [Concomitant]
  13. TRULICITY 0.75 MG, INJECTION Q WEEK [Concomitant]

REACTIONS (3)
  - Small intestinal obstruction [None]
  - Abdominal hernia [None]
  - Hepatic steatosis [None]
